FAERS Safety Report 14723558 (Version 1)
Quarter: 2018Q2

REPORT INFORMATION
  Report Type: Spontaneous
  Country: US (occurrence: US)
  Receive Date: 20180405
  Receipt Date: 20180405
  Transmission Date: 20180711
  Serious: Yes (Other)
  Sender: FDA-Public Use
  Company Number: US-JNJFOC-20180210895

PATIENT

DRUGS (1)
  1. IBRUTINIB [Suspect]
     Active Substance: IBRUTINIB
     Indication: WALDENSTROM^S MACROGLOBULINAEMIA
     Route: 048

REACTIONS (11)
  - Thrombocytopenia [Unknown]
  - Alanine aminotransferase increased [Unknown]
  - Mouth ulceration [Unknown]
  - Skin mass [Unknown]
  - Fatigue [Unknown]
  - Headache [Unknown]
  - Aspartate aminotransferase increased [Unknown]
  - Toxicity to various agents [Unknown]
  - Atrial fibrillation [Unknown]
  - Haemorrhage [Unknown]
  - Arthralgia [Unknown]
